FAERS Safety Report 4439765-1 (Version None)
Quarter: 2004Q3

REPORT INFORMATION
  Report Type: 
  Country: None (occurrence: None)
  Receive Date: 20040831
  Receipt Date: 20040820
  Transmission Date: 20050211
  Serious: Yes (Other)
  Sender: FDA-Public Use
  Company Number: 163-20785-04070123

PATIENT
  Age: 73 Year
  Sex: Male

DRUGS (3)
  1. THALOMID [Suspect]
     Indication: LUNG NEOPLASM MALIGNANT
     Dosage: 50 MG, DAILY, ORAL
     Route: 048
     Dates: start: 20040102
  2. PRED FORTE (OPHTHALMIC) [Concomitant]
  3. ALPHAGAN (BRIMONIDINE TARTRATE) (OPHTHALMIC) [Concomitant]

REACTIONS (2)
  - RETINAL DISORDER [None]
  - VISION BLURRED [None]
